FAERS Safety Report 25167716 (Version 1)
Quarter: 2025Q2

REPORT INFORMATION
  Report Type: Report from Study
  Country: US (occurrence: US)
  Receive Date: 20250407
  Receipt Date: 20250407
  Transmission Date: 20250716
  Serious: Yes (Hospitalization)
  Sender: ABBVIE
  Company Number: US-ABBVIE-6213529

PATIENT
  Age: 68 Year
  Sex: Female

DRUGS (1)
  1. VENETOCLAX [Suspect]
     Active Substance: VENETOCLAX
     Indication: Myelosuppression
     Dosage: TAKE 4 TABLET(S) BY MOUTH DAILY WITH A MEAL AND WATER AT ?THE SAME TIME EACH DAY
     Route: 048

REACTIONS (1)
  - Supraventricular tachycardia [Unknown]
